FAERS Safety Report 10496488 (Version 1)
Quarter: 2014Q4

REPORT INFORMATION
  Report Type: Spontaneous
  Country: US (occurrence: US)
  Receive Date: 20141004
  Receipt Date: 20141004
  Transmission Date: 20150528
  Serious: No
  Sender: FDA-Public Use
  Company Number: US-009507513-1409USA006731

PATIENT

DRUGS (1)
  1. PEGINTRON [Suspect]
     Active Substance: PEGINTERFERON ALFA-2B
     Dosage: 150 MICROGRAM, WEEKLY
     Route: 030

REACTIONS (5)
  - Overdose [Unknown]
  - Product quality issue [Unknown]
  - Injection site erythema [Unknown]
  - Incorrect route of drug administration [Unknown]
  - Injection site bruising [Unknown]
